FAERS Safety Report 14709946 (Version 1)
Quarter: 2018Q2

REPORT INFORMATION
  Report Type: Spontaneous
  Country: IT (occurrence: IT)
  Receive Date: 20180403
  Receipt Date: 20180403
  Transmission Date: 20180711
  Serious: Yes (Hospitalization)
  Sender: FDA-Public Use
  Company Number: PHHY2017IT192537

PATIENT
  Age: 35 Year
  Sex: Female

DRUGS (2)
  1. CLAVULANIC ACID [Suspect]
     Active Substance: CLAVULANIC ACID
     Indication: PHARYNGOTONSILLITIS
     Dosage: 1 G, QD
     Route: 065
  2. AMOXICILLIN. [Suspect]
     Active Substance: AMOXICILLIN
     Indication: PHARYNGOTONSILLITIS
     Dosage: 1 G, QD
     Route: 065

REACTIONS (2)
  - Lymphadenopathy [Unknown]
  - Acute generalised exanthematous pustulosis [Recovering/Resolving]
